FAERS Safety Report 20335897 (Version 1)
Quarter: 2022Q1

REPORT INFORMATION
  Report Type: Spontaneous
  Country: US (occurrence: None)
  Receive Date: 20220113
  Receipt Date: 20220113
  Transmission Date: 20220423
  Serious: No
  Sender: FDA-Public Use
  Company Number: None

PATIENT
  Age: 35 Year
  Sex: Female

DRUGS (1)
  1. ENOXAPARIN SODIUM [Suspect]
     Active Substance: ENOXAPARIN SODIUM
     Indication: Product used for unknown indication
     Dosage: FREQUENCY : DAILY;?
     Route: 058
     Dates: start: 202112

REACTIONS (4)
  - Exposure during pregnancy [None]
  - Abortion spontaneous [None]
  - Recalled product administered [None]
  - Product temperature excursion issue [None]

NARRATIVE: CASE EVENT DATE: 20211206
